FAERS Safety Report 7225923-X (Version None)
Quarter: 2011Q1

REPORT INFORMATION
  Report Type: 
  Country: None (occurrence: None)
  Receive Date: 20110113
  Receipt Date: 20110104
  Transmission Date: 20110831
  Serious: Yes (Death, Hospitalization, Other)
  Sender: FDA-Public Use
  Company Number: DE-PFIZER INC-2010052756

PATIENT
  Age: 87 Year
  Sex: Male

DRUGS (12)
  1. DETRUSITOL [Suspect]
     Indication: INCONTINENCE
     Dosage: 2 MG, 1X/DAY
     Route: 048
     Dates: start: 20080727
  2. NOVODIGAL [Suspect]
     Indication: CARDIAC FAILURE
     Dosage: 0.2 MG, 1X/DAY
     Route: 048
     Dates: start: 20080727
  3. ALLOPURINOL [Suspect]
     Indication: HYPERURICAEMIA
     Dosage: 300 MG, 1X/DAY
     Route: 048
     Dates: start: 20080724
  4. IBUPROFEN [Suspect]
     Indication: PAIN
     Dosage: 600 MG, UNK
     Route: 048
     Dates: start: 20080727
  5. ASPIRIN [Suspect]
     Indication: THROMBOSIS PROPHYLAXIS
     Dosage: 100 MG, UNK
     Route: 048
     Dates: start: 20080727
  6. TORSEMIDE [Suspect]
     Indication: HYPERTENSION
     Dosage: 10 MG, 1X/DAY
     Route: 048
     Dates: start: 20070101
  7. EMBOLEX [Concomitant]
     Indication: THROMBOPHLEBITIS
     Dosage: UNK
     Dates: start: 20080819, end: 20080820
  8. DEXA POLYSPECTRAN N [Suspect]
     Indication: CONJUNCTIVITIS
     Dosage: UNK
     Route: 047
     Dates: start: 20080724
  9. CYNT [Suspect]
     Indication: CARDIAC FAILURE
     Dosage: 0.3 MG, UNK
     Route: 048
     Dates: start: 20080728
  10. FOLIC ACID [Suspect]
     Indication: SUPPLEMENTATION THERAPY
     Dosage: UNK
     Route: 048
     Dates: start: 20080727
  11. BETAISODONA [Suspect]
     Dosage: UNK
     Route: 061
     Dates: start: 20080728
  12. FERROUS GLUCONATE [Suspect]

REACTIONS (23)
  - MULTI-ORGAN FAILURE [None]
  - LUNG INFILTRATION [None]
  - STEVENS-JOHNSON SYNDROME [None]
  - PNEUMONIA FUNGAL [None]
  - THROMBOPHLEBITIS [None]
  - CONDITION AGGRAVATED [None]
  - MYCOPLASMA TEST POSITIVE [None]
  - STAPHYLOCOCCAL SEPSIS [None]
  - PANCYTOPENIA [None]
  - RENAL FAILURE [None]
  - RESPIRATORY FAILURE [None]
  - VEIN DISORDER [None]
  - SYSTEMIC INFLAMMATORY RESPONSE SYNDROME [None]
  - CAPILLARY LEAK SYNDROME [None]
  - GENERALISED OEDEMA [None]
  - BRONCHOPNEUMONIA [None]
  - DEHYDRATION [None]
  - BONE MARROW TOXICITY [None]
  - PROSTATIC SPECIFIC ANTIGEN INCREASED [None]
  - OEDEMA PERIPHERAL [None]
  - HEPATIC FUNCTION ABNORMAL [None]
  - CARDIAC FAILURE [None]
  - HYPOALBUMINAEMIA [None]
